FAERS Safety Report 5112883-0 (Version None)
Quarter: 2006Q3

REPORT INFORMATION
  Report Type: 
  Country: None (occurrence: None)
  Receive Date: 20060921
  Receipt Date: 20060921
  Transmission Date: 20061208
  Serious: Yes (Other)
  Sender: FDA-Public Use
  Company Number: None

PATIENT
  Age: 26 Year
  Sex: Female

DRUGS (1)
  1. SERTRALINE [Suspect]
     Dosage: 200 MG QD PO
     Route: 048
     Dates: start: 20060901

REACTIONS (6)
  - DEHYDRATION [None]
  - DIARRHOEA [None]
  - DRUG EXPOSURE DURING PREGNANCY [None]
  - HEADACHE [None]
  - PREGNANCY [None]
  - THERAPEUTIC RESPONSE UNEXPECTED WITH DRUG SUBSTITUTION [None]
